FAERS Safety Report 11428883 (Version 1)
Quarter: 2015Q3

REPORT INFORMATION
  Report Type: Spontaneous
  Country: US (occurrence: US)
  Receive Date: 20150828
  Receipt Date: 20150828
  Transmission Date: 20151125
  Serious: No
  Sender: FDA-Public Use
  Company Number: US-ROCHE-1191028

PATIENT
  Age: 62 Year
  Sex: Male

DRUGS (4)
  1. RIBAVIRIN. [Suspect]
     Active Substance: RIBAVIRIN
     Indication: CHRONIC HEPATITIS C
     Dosage: IN DIVIDE DOSE OF 600/600
     Route: 065
     Dates: start: 20121109
  2. PEGASYS [Suspect]
     Active Substance: PEGINTERFERON ALFA-2A
     Indication: CHRONIC HEPATITIS C
     Route: 058
     Dates: start: 20121109
  3. BOCEPREVIR [Suspect]
     Active Substance: BOCEPREVIR
     Indication: CHRONIC HEPATITIS C
     Route: 065
  4. RIBAVIRIN. [Suspect]
     Active Substance: RIBAVIRIN
     Dosage: IN DIVIDE DOSE OF 400/400
     Route: 065

REACTIONS (5)
  - Diarrhoea [Unknown]
  - Anaemia [Unknown]
  - Movement disorder [Unknown]
  - Dysphagia [Unknown]
  - Dysstasia [Unknown]

NARRATIVE: CASE EVENT DATE: 20130213
